FAERS Safety Report 5315417-0 (Version None)
Quarter: 2007Q2

REPORT INFORMATION
  Report Type: 
  Country: None (occurrence: None)
  Receive Date: 20070503
  Receipt Date: 20070425
  Transmission Date: 20071010
  Serious: No
  Sender: FDA-Public Use
  Company Number: PHMT2007CA00839

PATIENT
  Age: 78 Year
  Weight: 86.6 kg

DRUGS (1)
  1. ZOMETA [Suspect]
     Indication: METASTASES TO BONE
     Dosage: 4MG EVERY MONTH
     Route: 042
     Dates: start: 20070208

REACTIONS (2)
  - PAIN IN JAW [None]
  - TOOTHACHE [None]
